FAERS Safety Report 8011638-7 (Version None)
Quarter: 2011Q4

REPORT INFORMATION
  Report Type: 
  Country: None (occurrence: None)
  Receive Date: 20111228
  Receipt Date: 20111223
  Transmission Date: 20120403
  Serious: Yes (Other)
  Sender: FDA-Public Use
  Company Number: FR-B.I. PHARMACEUTICALS,INC./RIDGEFIELD-2011-FF-01222FF

PATIENT
  Sex: Female

DRUGS (4)
  1. RABEPRAZOLE SODIUM [Concomitant]
     Dosage: 10 MG
     Route: 048
     Dates: start: 20110927
  2. PRADAXA [Suspect]
     Indication: KNEE ARTHROPLASTY
     Dosage: 150 MG
     Route: 048
     Dates: start: 20110927, end: 20110929
  3. ACETAMINOPHEN [Concomitant]
     Dosage: 4000 MG
     Route: 048
     Dates: start: 20110927
  4. MOVIPREP [Concomitant]
     Route: 048
     Dates: start: 20110927, end: 20110928

REACTIONS (2)
  - PHLEBITIS [None]
  - DRUG INEFFECTIVE [None]
